FAERS Safety Report 8782995 (Version 1)
Quarter: 2012Q4

REPORT INFORMATION
  Report Type: Report from Study
  Country: US (occurrence: US)
  Receive Date: 20120913
  Receipt Date: 20120913
  Transmission Date: 20130627
  Serious: No
  Sender: FDA-Public Use
  Company Number: US-VERTEX PHARMACEUTICAL INC.-AE-2012-009718

PATIENT
  Age: 60 Year
  Sex: Male

DRUGS (11)
  1. INCIVEK [Suspect]
     Indication: HEPATITIS C
     Route: 048
  2. IBUPROFEN [Concomitant]
  3. LORATADINE [Concomitant]
  4. SUDAFD NASAL TAB DECONGES [Concomitant]
  5. FLONASE SPR [Concomitant]
  6. OMEPRAZOLE [Concomitant]
  7. VITAMIN C [Concomitant]
  8. OMEGA-3 [Concomitant]
  9. BIOFLEX [Concomitant]
  10. VITAMIN D HIGH CAP POTENCY [Concomitant]
  11. MILK THISTLE [Concomitant]

REACTIONS (1)
  - Adverse reaction [Unknown]
